FAERS Safety Report 4981668-8 (Version None)
Quarter: 2006Q2

REPORT INFORMATION
  Report Type: 
  Country: None (occurrence: None)
  Receive Date: 20060425
  Receipt Date: 20060227
  Transmission Date: 20061013
  Serious: No
  Sender: FDA-Public Use
  Company Number: US-GLAXOSMITHKLINE-A0595331A

PATIENT
  Sex: Male

DRUGS (3)
  1. LEXIVA [Suspect]
     Indication: HIV INFECTION
     Dosage: 1400MG TWICE PER DAY
     Route: 048
  2. LOMOTIL [Concomitant]
  3. VIREAD [Concomitant]

REACTIONS (2)
  - DIARRHOEA [None]
  - HICCUPS [None]
